FAERS Safety Report 21001818 (Version 2)
Quarter: 2023Q4

REPORT INFORMATION
  Report Type: Spontaneous
  Country: DE (occurrence: DE)
  Receive Date: 20220624
  Receipt Date: 20231015
  Transmission Date: 20240109
  Serious: Yes (Death, Other)
  Sender: FDA-Public Use
  Company Number: DE-PFIZER INC-202200642381

PATIENT
  Age: 8 Decade
  Sex: Female

DRUGS (4)
  1. PEMBROLIZUMAB [Suspect]
     Active Substance: PEMBROLIZUMAB
     Indication: Neoplasm
     Dosage: 200 MILLIGRAM, EVERY 3 WEEKS
     Dates: start: 20201130
  2. PEMBROLIZUMAB [Suspect]
     Active Substance: PEMBROLIZUMAB
     Dosage: 400 MILLIGRAM, EVERY 3 WEEKS
  3. PEMBROLIZUMAB [Suspect]
     Active Substance: PEMBROLIZUMAB
     Dosage: 200 MILLIGRAM, EVERY 3 WEEKS
  4. INLYTA [Suspect]
     Active Substance: AXITINIB
     Indication: Neoplasm
     Dosage: 5 MG, 2X/DAY
     Dates: start: 20201130

REACTIONS (2)
  - Off label use [Unknown]
  - Death [Fatal]
